FAERS Safety Report 8904405 (Version 1)
Quarter: 2012Q4

REPORT INFORMATION
  Report Type: 
  Country: US (occurrence: US)
  Receive Date: 20121112
  Receipt Date: 20121112
  Transmission Date: 20130627
  Serious: Yes (Other)
  Sender: FDA-Public Use
  Company Number: US-BAYER-2012-115027

PATIENT
  Age: 70 Year
  Sex: Female
  Weight: 61.22 kg

DRUGS (6)
  1. BAYER GENUINE ASPIRIN ORIGINAL STRENGTH [Suspect]
     Indication: MYOCARDIAL INFARCT PROPHYLAXIS
     Dosage: 1 DF, QD
     Route: 048
     Dates: start: 201204, end: 201209
  2. LIPITOR [Concomitant]
  3. FISH OIL [Concomitant]
  4. AC-BUTAMOL [Concomitant]
  5. DIOVAN HCT [Concomitant]
  6. MULTI VITAMIN [Concomitant]

REACTIONS (7)
  - Abdominal discomfort [None]
  - Gastric pH decreased [Recovered/Resolved]
  - Dysgeusia [Recovered/Resolved]
  - Gastrointestinal sounds abnormal [Recovered/Resolved]
  - Nausea [Recovered/Resolved]
  - Abdominal pain [Recovered/Resolved]
  - Gastric haemorrhage [None]
